FAERS Safety Report 6371257-5 (Version None)
Quarter: 2009Q3

REPORT INFORMATION
  Report Type: 
  Country: None (occurrence: None)
  Receive Date: 20090923
  Receipt Date: 20071002
  Transmission Date: 20100115
  Serious: Yes (Other)
  Sender: FDA-Public Use
  Company Number: US-ASTRAZENECA-2006UW27842

PATIENT
  Age: 611 Month
  Sex: Female
  Weight: 75.3 kg

DRUGS (38)
  1. SEROQUEL [Suspect]
     Indication: SCHIZOPHRENIA
     Route: 048
     Dates: start: 20010101, end: 20050201
  2. SEROQUEL [Suspect]
     Indication: BIPOLAR DISORDER
     Route: 048
     Dates: start: 20010101, end: 20050201
  3. SEROQUEL [Suspect]
     Indication: DEPRESSION
     Route: 048
     Dates: start: 20010101, end: 20050201
  4. SEROQUEL [Suspect]
     Dosage: 300 MG TO 800 MG
     Route: 048
     Dates: start: 20010201
  5. SEROQUEL [Suspect]
     Dosage: 300 MG TO 800 MG
     Route: 048
     Dates: start: 20010201
  6. SEROQUEL [Suspect]
     Dosage: 300 MG TO 800 MG
     Route: 048
     Dates: start: 20010201
  7. CLOZARIL [Concomitant]
  8. GEODON [Concomitant]
  9. HALDOL [Concomitant]
  10. RISPERDAL [Concomitant]
  11. STELAZINE [Concomitant]
  12. ATIVAN [Concomitant]
     Dosage: 0.5 MG TO 2 MG
     Route: 048
     Dates: start: 20010201
  13. GABAPENTIN [Concomitant]
     Dates: start: 20030721
  14. SERTRALINE HCL [Concomitant]
     Dosage: 25 MG TO 50 MG
     Dates: start: 20030721
  15. CARBAMAZEPINE [Concomitant]
     Dates: start: 20030722
  16. BENZTROPINE MESYLATE [Concomitant]
     Dates: start: 20030722
  17. DALMANE [Concomitant]
     Route: 048
     Dates: start: 20010201
  18. DEPAKOTE [Concomitant]
     Dates: start: 20030130
  19. CLONIDINE [Concomitant]
  20. COMBIVIR [Concomitant]
     Dates: start: 20050329
  21. ETHAMBUTOL HYDROCHLORIDE [Concomitant]
     Dates: start: 20050329
  22. FLUPHENAZINE [Concomitant]
     Dates: start: 20060328
  23. FLUPHENAZINE [Concomitant]
     Route: 030
     Dates: start: 20050420
  24. FOLIC ACID [Concomitant]
     Dates: start: 20050223
  25. LANTUS [Concomitant]
     Dosage: 100 U/ML
     Dates: start: 20050329
  26. LEVAQUIN [Concomitant]
     Dates: start: 20050329
  27. PROCRIT [Concomitant]
     Dosage: 20000 U/ML TO 40000 U/ML
     Dates: start: 20050329
  28. RANITIDINE [Concomitant]
     Dates: start: 20050201
  29. ALBUTEROL [Concomitant]
     Dates: start: 20041205
  30. NEUPOGEN [Concomitant]
     Dosage: 300 UG/ML
     Dates: start: 20050329
  31. SUSTIVA [Concomitant]
     Dates: start: 20050329
  32. ZITHROMAX [Concomitant]
     Dates: start: 20050411
  33. GLIPIZIDE [Concomitant]
     Dates: start: 20050407
  34. AMBIEN [Concomitant]
     Dates: start: 20050801
  35. METOPROLOL TARTRATE [Concomitant]
     Dates: start: 20060327
  36. METOCLOPRAMIDE [Concomitant]
     Dates: start: 20051005
  37. DOCUSATE SODIUM [Concomitant]
     Dates: start: 20051005
  38. TRILEPTAL [Concomitant]
     Dosage: 300 MG TO 900 MG
     Dates: start: 20040324

REACTIONS (4)
  - DIABETES MELLITUS [None]
  - DIABETIC COMA [None]
  - HYPOGLYCAEMIA [None]
  - TYPE 2 DIABETES MELLITUS [None]
